FAERS Safety Report 20690036 (Version 1)
Quarter: 2022Q2

REPORT INFORMATION
  Report Type: Spontaneous
  Country: GB (occurrence: GB)
  Receive Date: 20220408
  Receipt Date: 20220408
  Transmission Date: 20220721
  Serious: Yes (Other)
  Sender: FDA-Public Use
  Company Number: None

PATIENT
  Age: 91 Year
  Sex: Female
  Weight: 40 kg

DRUGS (10)
  1. DOXYCYCLINE [Suspect]
     Active Substance: DOXYCYCLINE
     Dosage: 2 DOSAGE FORMS DAILY; TWO INITIALLY AND THEN ONE DAILY
     Dates: start: 20220317
  2. APIXABAN [Concomitant]
     Active Substance: APIXABAN
     Dosage: 2 DOSAGE FORMS DAILY;
     Dates: start: 20211126, end: 20220317
  3. ATORVASTATIN [Concomitant]
     Active Substance: ATORVASTATIN
     Dosage: 1 DOSAGE FORMS DAILY;
     Dates: start: 20211126
  4. CETRABEN [Concomitant]
     Dosage: APPLY AS NEEDED, EMOLLIENT CREAM
     Dates: start: 20211126
  5. CLARITHROMYCIN [Concomitant]
     Active Substance: CLARITHROMYCIN
     Dosage: 2 DOSAGE FORMS DAILY; TAKE ONE EVERY 12 HRS, STOP ATORVASTATIN WHILE
     Dates: start: 20220322
  6. DIGOXIN [Concomitant]
     Active Substance: DIGOXIN
     Dosage: 1 DOSAGE FORMS DAILY;  AS ADVISED BY HEART FAILU...
     Dates: start: 20211126
  7. FUROSEMIDE [Concomitant]
     Active Substance: FUROSEMIDE
     Dosage: 6 DOSAGE FORMS DAILY; TAKE THREE TABLETS (120MG) TWICE DAILY AS PER H...
     Dates: start: 20211126
  8. INVITA-D3 [Concomitant]
     Dosage: 1 DOSAGE FORMS DAILY;
     Dates: start: 20211126
  9. LANSOPRAZOLE [Concomitant]
     Active Substance: LANSOPRAZOLE
     Dosage: 1 DOSAGE FORMS DAILY; TAKE ONE ONCE DAILY
     Dates: start: 20211126
  10. WARFARIN SODIUM [Concomitant]
     Active Substance: WARFARIN SODIUM
     Dosage: USE AS DIRECTED
     Dates: start: 20211126

REACTIONS (2)
  - Disorientation [Recovered/Resolved]
  - Dizziness [Recovered/Resolved]

NARRATIVE: CASE EVENT DATE: 20220321
